FAERS Safety Report 13689198 (Version 1)
Quarter: 2017Q2

REPORT INFORMATION
  Report Type: Spontaneous
  Country: US (occurrence: US)
  Receive Date: 20170626
  Receipt Date: 20170626
  Transmission Date: 20170830
  Serious: Yes (Other)
  Sender: FDA-Public Use
  Company Number: US-MYLANLABS-2017M1038107

PATIENT

DRUGS (3)
  1. BUPIVACAINE. [Suspect]
     Active Substance: BUPIVACAINE
     Indication: ARTHRALGIA
     Dosage: ADMINISTERED AS TRIGGER-POINT INJECTION
     Route: 065
  2. METHYLPREDNISOLONE. [Suspect]
     Active Substance: METHYLPREDNISOLONE
     Indication: ARTHRALGIA
     Dosage: ADMINISTERED AS TRIGGER-POINT INJECTION
     Route: 065
  3. EPINEPHRINE. [Suspect]
     Active Substance: EPINEPHRINE
     Indication: ARTHRALGIA
     Dosage: ADMINISTERED AS TRIGGER-POINT INJECTION
     Route: 065

REACTIONS (2)
  - Hypokalaemia [Recovered/Resolved]
  - Paralysis [Recovered/Resolved]
